FAERS Safety Report 18928680 (Version 4)
Quarter: 2022Q2

REPORT INFORMATION
  Report Type: Report from Study
  Country: CA (occurrence: CA)
  Receive Date: 20210223
  Receipt Date: 20220509
  Transmission Date: 20220720
  Serious: Yes (Other)
  Sender: FDA-Public Use
  Company Number: CA-TAKEDA-2020TUS053808

PATIENT
  Age: 26 Year
  Sex: Male

DRUGS (8)
  1. HUMAN IMMUNOGLOBULIN G [Suspect]
     Active Substance: HUMAN IMMUNOGLOBULIN G
     Indication: Primary immunodeficiency syndrome
     Dosage: 12 GRAM, 1/WEEK
     Route: 058
     Dates: start: 20200929
  2. HUMAN IMMUNOGLOBULIN G [Suspect]
     Active Substance: HUMAN IMMUNOGLOBULIN G
     Dosage: 12 GRAM, 1/WEEK
     Route: 065
     Dates: start: 20200929
  3. HUMAN IMMUNOGLOBULIN G [Suspect]
     Active Substance: HUMAN IMMUNOGLOBULIN G
     Dosage: 12 GRAM, 1/WEEK
     Route: 065
     Dates: start: 20200929
  4. HUMAN IMMUNOGLOBULIN G [Suspect]
     Active Substance: HUMAN IMMUNOGLOBULIN G
     Dosage: 12 GRAM, 1/WEEK
     Route: 065
     Dates: start: 20200929
  5. VENTOLIN [Concomitant]
     Active Substance: ALBUTEROL SULFATE
     Dosage: UNK
     Route: 065
  6. SYMBICORT [Concomitant]
     Active Substance: BUDESONIDE\FORMOTEROL FUMARATE DIHYDRATE
     Dosage: UNK
     Route: 065
  7. CETIRIZINE HYDROCHLORIDE [Concomitant]
     Active Substance: CETIRIZINE HYDROCHLORIDE
     Dosage: UNK
     Route: 065
  8. AMOXICILLIN\CLAVULANIC ACID [Concomitant]
     Active Substance: AMOXICILLIN\CLAVULANIC ACID
     Dosage: UNK
     Route: 065

REACTIONS (11)
  - COVID-19 [Recovering/Resolving]
  - Cystitis [Not Recovered/Not Resolved]
  - Illness [Recovered/Resolved]
  - Weight decreased [Unknown]
  - Infusion site mass [Recovered/Resolved]
  - Nausea [Recovered/Resolved]
  - Fatigue [Recovered/Resolved]
  - Erythema [Unknown]
  - Infusion site pruritus [Unknown]
  - Injection site pain [Recovered/Resolved]
  - Incorrect dose administered [Unknown]

NARRATIVE: CASE EVENT DATE: 20201201
